FAERS Safety Report 9859670 (Version 1)
Quarter: 2014Q1

REPORT INFORMATION
  Report Type: Spontaneous
  Country: US (occurrence: US)
  Receive Date: 20140131
  Receipt Date: 20140131
  Transmission Date: 20141002
  Serious: Yes (Other)
  Sender: FDA-Public Use
  Company Number: US-GLAXOSMITHKLINE-A1058289A

PATIENT
  Age: 68 Year
  Sex: Female

DRUGS (6)
  1. ADVAIR [Suspect]
     Indication: CHRONIC OBSTRUCTIVE PULMONARY DISEASE
     Dosage: 1PUFF TWICE PER DAY
     Route: 055
     Dates: start: 201307
  2. LAMICTAL [Concomitant]
  3. DIGOXIN [Concomitant]
  4. LEVOTHYROXINE [Concomitant]
  5. KLONOPIN [Concomitant]
  6. PRAVASTATIN [Concomitant]

REACTIONS (5)
  - Bronchitis bacterial [Recovering/Resolving]
  - Dyspnoea [Recovering/Resolving]
  - Cough [Recovering/Resolving]
  - Musculoskeletal chest pain [Recovering/Resolving]
  - Tremor [Recovering/Resolving]
